FAERS Safety Report 10186385 (Version 1)
Quarter: 2014Q2

REPORT INFORMATION
  Report Type: Spontaneous
  Country: US (occurrence: US)
  Receive Date: 20140521
  Receipt Date: 20140521
  Transmission Date: 20141212
  Serious: No
  Sender: FDA-Public Use
  Company Number: US-ASTRAZENECA-2013SE53657

PATIENT
  Age: 59 Year
  Sex: Female

DRUGS (4)
  1. PULMICORT FLEXHALER [Suspect]
     Route: 055
     Dates: start: 201306
  2. PULMICORT FLEXHALER [Suspect]
     Dosage: 90 MCG 1 PUFF DAILY
     Route: 055
     Dates: start: 20130711
  3. PULMICORT FLEXHALER [Suspect]
     Dosage: 4 TIMES DAILY
     Route: 055
  4. DUTROFEN [Concomitant]
     Indication: CHEST PAIN
     Route: 061

REACTIONS (5)
  - Dysphemia [Unknown]
  - Chest pain [Unknown]
  - Cough [Unknown]
  - Intentional product misuse [Unknown]
  - Drug ineffective [Unknown]
